FAERS Safety Report 19252353 (Version 1)
Quarter: 2021Q2

REPORT INFORMATION
  Report Type: Spontaneous
  Country: US (occurrence: US)
  Receive Date: 20210513
  Receipt Date: 20210513
  Transmission Date: 20210717
  Serious: Yes (Hospitalization)
  Sender: FDA-Public Use
  Company Number: None

PATIENT
  Age: 66 Year
  Sex: Female
  Weight: 106 kg

DRUGS (3)
  1. ISOSULFAN BLUE. [Suspect]
     Active Substance: ISOSULFAN BLUE
     Indication: BIOPSY LYMPH GLAND
     Dosage: ?          OTHER FREQUENCY:ONCE;OTHER ROUTE:USED FOR SENTINEL NODE IDENTIFICAITON?
     Dates: start: 20210430
  2. CEFAZOLIN [Concomitant]
     Active Substance: CEFAZOLIN
     Dates: start: 20210430
  3. BUPIVACAINE LOCAL ANESTHETIC [Concomitant]
     Dates: start: 20210430

REACTIONS (1)
  - Anaphylactoid reaction [None]

NARRATIVE: CASE EVENT DATE: 20210501
